FAERS Safety Report 22288779 (Version 2)
Quarter: 2023Q2

REPORT INFORMATION
  Report Type: Spontaneous
  Country: US (occurrence: US)
  Receive Date: 20230505
  Receipt Date: 20230605
  Transmission Date: 20230722
  Serious: Yes (Hospitalization)
  Sender: FDA-Public Use
  Company Number: US-VERTEX PHARMACEUTICALS-2023-005693

PATIENT
  Age: 15 Year
  Sex: Male

DRUGS (1)
  1. TRIKAFTA [Suspect]
     Active Substance: ELEXACAFTOR\IVACAFTOR\TEZACAFTOR
     Indication: Cystic fibrosis
     Dosage: 2 PILLS AM/ 1 PILL PM
     Route: 048
     Dates: start: 201912

REACTIONS (6)
  - Bronchiectasis [Unknown]
  - Infective pulmonary exacerbation of cystic fibrosis [Unknown]
  - Staphylococcus test positive [Unknown]
  - Body mass index decreased [Recovering/Resolving]
  - Burkholderia test positive [Unknown]
  - Drug ineffective [Unknown]

NARRATIVE: CASE EVENT DATE: 20190101
